FAERS Safety Report 10021044 (Version 1)
Quarter: 2014Q1

REPORT INFORMATION
  Report Type: Spontaneous
  Country: US (occurrence: None)
  Receive Date: 20140318
  Receipt Date: 20140318
  Transmission Date: 20141002
  Serious: Yes (Other)
  Sender: FDA-Public Use
  Company Number: None

PATIENT
  Age: 69 Year
  Sex: Female
  Weight: 81.65 kg

DRUGS (1)
  1. VALSARTAN [Suspect]
     Indication: HYPERTENSION
     Dosage: 1 PER DAY ONCE DAILY
     Dates: start: 20140101, end: 20140314

REACTIONS (4)
  - Pain in extremity [None]
  - Dysgeusia [None]
  - Joint swelling [None]
  - Abdominal discomfort [None]
